FAERS Safety Report 5503829-1 (Version None)
Quarter: 2007Q4

REPORT INFORMATION
  Report Type: 
  Country: None (occurrence: None)
  Receive Date: 20071030
  Receipt Date: 20070827
  Transmission Date: 20080405
  Serious: No
  Sender: FDA-Public Use
  Company Number: 266949

PATIENT
  Age: 69 Year
  Sex: Female

DRUGS (2)
  1. LEVEMIR [Suspect]
     Indication: TYPE 2 DIABETES MELLITUS
     Dosage: 36 IU, QD, SUBCUTANEOUS
     Route: 058
     Dates: start: 20070811
  2. DARVOCET [Concomitant]

REACTIONS (2)
  - TREMOR [None]
  - VISION BLURRED [None]
